FAERS Safety Report 4471320-X (Version None)
Quarter: 2004Q3

REPORT INFORMATION
  Report Type: 
  Country: None (occurrence: None)
  Receive Date: 20040909
  Receipt Date: 20040728
  Transmission Date: 20050211
  Serious: Yes (Hospitalization)
  Sender: FDA-Public Use
  Company Number: F01200402251

PATIENT
  Age: 65 Year
  Sex: Female

DRUGS (15)
  1. OXALIPLATIN-SOLUTION 85MG/M2 [Suspect]
     Indication: COLORECTAL CANCER METASTATIC
     Dosage: 136MG Q2W INTRAVENOUS NOS
     Route: 042
     Dates: start: 20040615, end: 20040615
  2. FLUOROURACIL [Suspect]
     Indication: COLON CANCER METASTATIC
     Dosage: 1600 MGQ2W INTRAVENOUS NOS
     Route: 042
     Dates: start: 20040615, end: 20040616
  3. LEUCOVORIN CALCIUM [Suspect]
     Indication: COLORECTAL CANCER METASTATIC
     Dosage: 320 MG Q2W INTRAVENOUS NOS
     Route: 042
     Dates: start: 20040615, end: 20040616
  4. BEVACIZUMAB SOLUTION 5MG/KG [Suspect]
     Indication: COLORECTAL CANCER METASTATIC
     Dosage: 290 MG Q2W INTRAVENOUS NOS
     Route: 042
     Dates: start: 20040615, end: 20040615
  5. ATORVASTATIN CALCIUM [Concomitant]
  6. ESTROGEN CONJUGATED [Concomitant]
  7. ALPRAZOLAM [Concomitant]
  8. FIORICET [Concomitant]
  9. POTASSIUM CHLORIDE [Concomitant]
  10. PROMETHAZINE HCL [Concomitant]
  11. LORAZEPAM [Concomitant]
  12. PALONOSETRON HYDROCHLORIDE [Concomitant]
  13. DEXAMETHASONE [Concomitant]
  14. FILGRASTIM [Concomitant]
  15. PERDNISONE [Concomitant]

REACTIONS (1)
  - ENTERITIS [None]
